FAERS Safety Report 17374229 (Version 1)
Quarter: 2020Q1

REPORT INFORMATION
  Report Type: Report from Study
  Country: US (occurrence: US)
  Receive Date: 20200205
  Receipt Date: 20200205
  Transmission Date: 20200409
  Serious: Yes (Other)
  Sender: FDA-Public Use
  Company Number: US-ROCHE-2539151

PATIENT
  Sex: Male

DRUGS (19)
  1. ACETAMINOPHEN. [Concomitant]
     Active Substance: ACETAMINOPHEN
     Dosage: TAKE 3 TABLETS BY MOUTH
     Route: 065
     Dates: start: 20191121
  2. ROBAXIN [Concomitant]
     Active Substance: METHOCARBAMOL
     Dosage: TAKE 1 TABLET BY MOUTH 4 TIMES DAILY
     Route: 065
     Dates: start: 20190813
  3. CHLORHEXIDINE [Concomitant]
     Active Substance: CHLORHEXIDINE
     Dosage: WASH WITH THIS ONCE A DAY FOR 2 WEEKS.
     Route: 065
     Dates: start: 20191111
  4. BENADRYL [Concomitant]
     Active Substance: DIPHENHYDRAMINE HYDROCHLORIDE
     Dosage: TAKE 1 TABLET BY MOUTH EVERY 6 HOURS AS NEEDED
     Route: 065
     Dates: start: 20191121
  5. CHOLECALCIFEROL [Concomitant]
     Active Substance: CHOLECALCIFEROL
     Dosage: TAKE 1 TABLET BY MOUTH
     Route: 065
     Dates: start: 20190225
  6. CIPROFLOXACIN. [Concomitant]
     Active Substance: CIPROFLOXACIN
     Dosage: TAKE 1 TABLET BY MOUTH 2 TIMES DAILY FOR 10 DAYS
     Route: 065
     Dates: start: 20190119, end: 20200129
  7. GABAPENTIN. [Concomitant]
     Active Substance: GABAPENTIN
     Route: 065
     Dates: start: 20200108
  8. OMEPRAZOLE. [Concomitant]
     Active Substance: OMEPRAZOLE
     Dosage: TAKE 2 IN MORNING
     Route: 065
  9. PERCOCET [Concomitant]
     Active Substance: ACETAMINOPHEN\OXYCODONE HYDROCHLORIDE
     Route: 065
     Dates: start: 20200108
  10. AMFETAMINE;DEXAMFETAMINE [Concomitant]
     Dosage: AMPHETAMINE-DEXTROAMPHETAMINE (ADDERALL) 30 MG TABLET
     Route: 065
  11. FLAGYL [Concomitant]
     Active Substance: METRONIDAZOLE\METRONIDAZOLE HYDROCHLORIDE
     Route: 065
     Dates: start: 20200119, end: 20200129
  12. PAXIL [Concomitant]
     Active Substance: PAROXETINE HYDROCHLORIDE
     Dosage: TAKE 2 TABLET BY MOUTH EVERY MORNING
     Route: 065
  13. VIAGRA [Concomitant]
     Active Substance: SILDENAFIL CITRATE
     Route: 065
     Dates: start: 20190813
  14. BUSPIRONE [Concomitant]
     Active Substance: BUSPIRONE HYDROCHLORIDE
     Dosage: TAKE 1 TABLET BY MOUTH 3 TIMES DAILY AS NEEDED
     Route: 065
     Dates: start: 20190813
  15. CETRIZINE [Concomitant]
     Active Substance: CETIRIZINE HYDROCHLORIDE
     Dosage: TAKE 1 TABLET ONCE DAILY 7 DAYS BEFORE AND AFTER OCREVUS INFUSION
     Route: 065
     Dates: start: 20190628
  16. ONDANSETRON [Concomitant]
     Active Substance: ONDANSETRON
     Dosage: TAKE 1 TABLET BY MOUTH EVERY 8 HOURS AS NEEDED
     Route: 065
  17. OCREVUS [Suspect]
     Active Substance: OCRELIZUMAB
     Indication: MULTIPLE SCLEROSIS
     Route: 042
     Dates: start: 20191121
  18. NARCAN [Concomitant]
     Active Substance: NALOXONE HYDROCHLORIDE
     Dosage: 1 SPRAY BY NASAL ROUTE AS NEEDED
     Route: 065
     Dates: start: 20191008
  19. VARENICLINE [Concomitant]
     Active Substance: VARENICLINE
     Dosage: TAKE 1 TABLET BY MOUTH 2 TIMES DAILY
     Route: 065
     Dates: start: 20191008

REACTIONS (1)
  - Clostridium difficile infection [Unknown]
